FAERS Safety Report 17652727 (Version 2)
Quarter: 2020Q2

REPORT INFORMATION
  Report Type: Spontaneous
  Country: GB (occurrence: GB)
  Receive Date: 20200409
  Receipt Date: 20200430
  Transmission Date: 20200713
  Serious: Yes (Death, Other)
  Sender: FDA-Public Use
  Company Number: GB-MYLANLABS-2020M1036270

PATIENT
  Age: 50 Year
  Sex: Male

DRUGS (2)
  1. CLOZAPINE. [Suspect]
     Active Substance: CLOZAPINE
     Indication: SCHIZOPHRENIA
     Dosage: 550 MILLIGRAM
     Route: 065
  2. COCAINE [Concomitant]
     Active Substance: COCAINE
     Indication: PRODUCT USED FOR UNKNOWN INDICATION
     Route: 065

REACTIONS (11)
  - Hypoxic-ischaemic encephalopathy [Unknown]
  - Myocardial fibrosis [Unknown]
  - Hepatic steatosis [Unknown]
  - Aortic arteriosclerosis [Unknown]
  - Cardiac arrest [Unknown]
  - Pulmonary oedema [Unknown]
  - Left ventricular hypertrophy [Unknown]
  - Pulmonary haemosiderosis [Unknown]
  - Death [Fatal]
  - Arteriosclerosis coronary artery [Unknown]
  - Spleen congestion [Unknown]
